FAERS Safety Report 9551357 (Version 2)
Quarter: 2013Q4

REPORT INFORMATION
  Report Type: Spontaneous
  Country: US (occurrence: None)
  Receive Date: 20130724
  Receipt Date: 20131226
  Transmission Date: 20140711
  Serious: Yes (Hospitalization, Other)
  Sender: FDA-Public Use
  Company Number: PHEH2013US009296

PATIENT
  Age: 72 Year
  Sex: Female

DRUGS (6)
  1. AFINITOR [Suspect]
     Route: 048
     Dates: start: 201303
  2. CARVEDILOL [Concomitant]
  3. GLIPIZIDE XL (GLIPIZIDE) [Concomitant]
  4. LEVOTHYROXINE [Concomitant]
  5. MICARDIS HCT (HYDROCHLOROTHIAZIDE, TELMISARTAN) [Concomitant]
  6. NORVASC (AMLODIPINE BESILATE) [Concomitant]

REACTIONS (5)
  - Hyperglycaemia [None]
  - Weight decreased [None]
  - Fatigue [None]
  - Nausea [None]
  - Decreased appetite [None]
